FAERS Safety Report 8502710-3 (Version None)
Quarter: 2012Q3

REPORT INFORMATION
  Report Type: 
  Country: None (occurrence: None)
  Receive Date: 20120702
  Receipt Date: 20120627
  Transmission Date: 20120928
  Serious: Yes (Hospitalization)
  Sender: FDA-Public Use
  Company Number: GER/UKI/12/0024815

PATIENT
  Age: 54 Year
  Sex: Male
  Weight: 100 kg

DRUGS (2)
  1. QUETIAPINE FUMARATE [Suspect]
     Indication: PSYCHOTIC DISORDER
     Dosage: 50 MG, 3 IN 1 D, ORAL
     Route: 048
     Dates: start: 20120201
  2. TEGRETOL-XR [Concomitant]

REACTIONS (2)
  - PAIN IN EXTREMITY [None]
  - PULMONARY EMBOLISM [None]
